FAERS Safety Report 5861100-2 (Version None)
Quarter: 2008Q3

REPORT INFORMATION
  Report Type: 
  Country: None (occurrence: None)
  Receive Date: 20080827
  Receipt Date: 20080218
  Transmission Date: 20090109
  Serious: No
  Sender: FDA-Public Use
  Company Number: US-ABBOTT-08P-163-0438775-00

PATIENT
  Sex: Male
  Weight: 95.45 kg

DRUGS (11)
  1. NIASPAN [Suspect]
     Indication: BLOOD CHOLESTEROL INCREASED
     Route: 048
     Dates: start: 20080215
  2. FENOFIBRATE [Concomitant]
     Indication: BLOOD TRIGLYCERIDES INCREASED
     Route: 048
  3. LOSARTAN POTASSIUM [Concomitant]
     Indication: HYPERTENSION
     Route: 048
  4. NITROGLYCERIN [Concomitant]
     Indication: PROPHYLAXIS
     Route: 048
  5. NITROGLYCERIN [Concomitant]
     Indication: CHEST PAIN
  6. ANTIDEPRESSANTS [Concomitant]
     Indication: DEPRESSION
     Route: 048
  7. METOPROLOL TARTRATE [Concomitant]
     Indication: CARDIAC DISORDER
     Route: 048
  8. VITAMIN TAB [Concomitant]
     Indication: DRUG USE FOR UNKNOWN INDICATION
     Route: 048
  9. REGULAR INSULIN [Concomitant]
     Indication: DIABETES MELLITUS
     Route: 048
  10. ISOPHANE INSULIN [Concomitant]
     Indication: DIABETES MELLITUS
     Route: 048
  11. IBUPROFEN [Concomitant]
     Indication: PROPHYLAXIS
     Route: 048
     Dates: start: 20080216

REACTIONS (2)
  - FLUSHING [None]
  - PARAESTHESIA [None]
